FAERS Safety Report 25025160 (Version 1)
Quarter: 2025Q1

REPORT INFORMATION
  Report Type: Spontaneous
  Country: US (occurrence: US)
  Receive Date: 20250228
  Receipt Date: 20250228
  Transmission Date: 20250408
  Serious: No
  Sender: PFIZER
  Company Number: US-PFIZER INC-202500043498

PATIENT
  Age: 10 Decade
  Sex: Male

DRUGS (1)
  1. PAXLOVID [Suspect]
     Active Substance: NIRMATRELVIR\RITONAVIR
     Indication: COVID-19 treatment

REACTIONS (6)
  - Cough [Unknown]
  - Abdominal pain [Unknown]
  - Productive cough [Unknown]
  - Wheezing [Unknown]
  - Influenza like illness [Unknown]
  - Hypersensitivity [Unknown]
